FAERS Safety Report 7652743-4 (Version None)
Quarter: 2011Q3

REPORT INFORMATION
  Report Type: 
  Country: None (occurrence: None)
  Receive Date: 20110803
  Receipt Date: 20110722
  Transmission Date: 20111222
  Serious: Yes (Other)
  Sender: FDA-Public Use
  Company Number: US-JNJFOC-20110710844

PATIENT

DRUGS (2)
  1. SUDAFED 12 HOUR [Suspect]
     Indication: SINUSITIS
     Route: 048
  2. SUDAFED 12 HOUR [Suspect]
     Indication: MULTIPLE ALLERGIES
     Route: 048

REACTIONS (1)
  - DEPENDENCE [None]
